FAERS Safety Report 4834758-4 (Version None)
Quarter: 2005Q4

REPORT INFORMATION
  Report Type: 
  Country: None (occurrence: None)
  Receive Date: 20051122
  Receipt Date: 20050919
  Transmission Date: 20060501
  Serious: No
  Sender: FDA-Public Use
  Company Number: US-BRISTOL-MYERS SQUIBB COMPANY-13116173

PATIENT
  Sex: Male

DRUGS (1)
  1. PRAVACHOL [Suspect]
     Dates: start: 20040501, end: 20041201

REACTIONS (1)
  - MUSCLE INJURY [None]
